FAERS Safety Report 21256453 (Version 1)
Quarter: 2022Q3

REPORT INFORMATION
  Report Type: Spontaneous
  Country: CO (occurrence: CO)
  Receive Date: 20220826
  Receipt Date: 20220826
  Transmission Date: 20221027
  Serious: Yes (Death, Hospitalization)
  Sender: FDA-Public Use
  Company Number: CO-STRIDES ARCOLAB LIMITED-2022SP010731

PATIENT
  Age: 64 Year
  Sex: Female

DRUGS (2)
  1. PREDNISOLONE [Suspect]
     Active Substance: PREDNISOLONE
     Indication: Rheumatoid arthritis
     Dosage: 5 MILLIGRAM (PER DAY) (5 MILLIGRAM/KILOGRAM)
     Route: 065
  2. TOFACITINIB [Suspect]
     Active Substance: TOFACITINIB
     Indication: Rheumatoid arthritis
     Dosage: 5 MILLIGRAM (EVERY 12 HRS)
     Route: 065

REACTIONS (4)
  - Disseminated cryptococcosis [Fatal]
  - Meningitis cryptococcal [Fatal]
  - Hydrocephalus [Unknown]
  - Urinary tract infection [Unknown]
